FAERS Safety Report 13819128 (Version 1)
Quarter: 2017Q3

REPORT INFORMATION
  Report Type: Report from Study
  Country: GB (occurrence: GB)
  Receive Date: 20170731
  Receipt Date: 20170731
  Transmission Date: 20171127
  Serious: Yes (Hospitalization)
  Sender: FDA-Public Use
  Company Number: GB-IPSEN-CABO-17009158

PATIENT
  Age: 63 Year
  Sex: Female
  Weight: 95 kg

DRUGS (6)
  1. CALCICHEW [Concomitant]
     Active Substance: CALCIUM CARBONATE
  2. CABOMETYX [Suspect]
     Active Substance: CABOZANTINIB S-MALATE
     Indication: RENAL CANCER METASTATIC
     Dosage: 60 MG, QD
     Dates: start: 20170228, end: 20170404
  3. GABAPENTIN. [Concomitant]
     Active Substance: GABAPENTIN
  4. VENLAFAXINE [Concomitant]
     Active Substance: VENLAFAXINE HYDROCHLORIDE
  5. LEVOTHYROXINE. [Concomitant]
     Active Substance: LEVOTHYROXINE
  6. OMEPRAZOLE. [Concomitant]
     Active Substance: OMEPRAZOLE

REACTIONS (4)
  - Drug tolerance [Unknown]
  - Liver function test abnormal [Recovered/Resolved]
  - Blood magnesium decreased [Recovered/Resolved]
  - Asthenia [Recovered/Resolved]

NARRATIVE: CASE EVENT DATE: 20170404
